FAERS Safety Report 15360869 (Version 1)
Quarter: 2018Q3

REPORT INFORMATION
  Report Type: Spontaneous
  Country: US (occurrence: US)
  Receive Date: 20180907
  Receipt Date: 20180907
  Transmission Date: 20181010
  Serious: Yes (Other)
  Sender: FDA-Public Use
  Company Number: US-ROCHE-2147815

PATIENT
  Age: 13 Year
  Weight: 97.16 kg

DRUGS (8)
  1. XOLAIR [Suspect]
     Active Substance: OMALIZUMAB
     Indication: ASTHMA
     Dosage: 4 TH DOSE
     Route: 065
  2. MUCINEX [Concomitant]
     Active Substance: GUAIFENESIN
     Dosage: AS NEEDED
     Route: 048
  3. MONTELUKAST SODIUM. [Concomitant]
     Active Substance: MONTELUKAST SODIUM
     Dosage: IN EVENING
     Route: 048
  4. VENTOLIN HFA [Concomitant]
     Active Substance: ALBUTEROL SULFATE
     Dosage: 2 PUFFS AS NEEDED INHALATION
     Route: 065
  5. EPIPEN [Concomitant]
     Active Substance: EPINEPHRINE
     Dosage: 0.3 MG/0.3 ML
     Route: 065
  6. ALBUTEROL SULFATE. [Concomitant]
     Active Substance: ALBUTEROL SULFATE
     Dosage: EVERY 4?6 HOURS AS NEEDED
     Route: 065
  7. NASACORT AQ [Concomitant]
     Active Substance: TRIAMCINOLONE ACETONIDE
     Dosage: 1 PUFF IN EACH NOSTRIL
     Route: 065
  8. SYMBICORT [Concomitant]
     Active Substance: BUDESONIDE\FORMOTEROL FUMARATE DIHYDRATE
     Dosage: 2 PUFF INHALATION
     Route: 055

REACTIONS (7)
  - Angioedema [Unknown]
  - Nasal turbinate hypertrophy [Unknown]
  - Urticaria [Unknown]
  - Injection site urticaria [Unknown]
  - Nasal mucosal disorder [Unknown]
  - Ocular hyperaemia [Unknown]
  - Oropharyngeal cobble stone mucosa [Unknown]

NARRATIVE: CASE EVENT DATE: 20180627
